FAERS Safety Report 6527404-5 (Version None)
Quarter: 2010Q1

REPORT INFORMATION
  Report Type: 
  Country: None (occurrence: None)
  Receive Date: 20100105
  Receipt Date: 20091222
  Transmission Date: 20100710
  Serious: Yes (Other)
  Sender: FDA-Public Use
  Company Number: JP-PFIZER INC-2009308803

PATIENT
  Age: 78 Year
  Sex: Female
  Weight: 48 kg

DRUGS (10)
  1. SELARA [Suspect]
     Indication: HYPERTENSION
     Dosage: 50 MG, 1X/DAY
     Route: 048
     Dates: start: 20091115, end: 20091127
  2. BLOPRESS [Suspect]
     Indication: HYPERTENSION
     Dosage: 8 MG, 1X/DAY
     Route: 048
     Dates: start: 20091115, end: 20091127
  3. ARTIST [Concomitant]
     Indication: HYPERTENSION
     Dosage: 5 MG, 1X/DAY
     Route: 048
     Dates: start: 20091115
  4. LASIX [Concomitant]
     Indication: CARDIAC FAILURE
     Dosage: 40 MG, 1X/DAY
     Route: 048
     Dates: start: 20091115
  5. WARFARIN [Concomitant]
     Route: 048
     Dates: start: 20091115
  6. ASPIRIN [Concomitant]
     Route: 048
     Dates: start: 20091115
  7. LENDORMIN [Concomitant]
     Route: 048
     Dates: start: 20091115
  8. SALOBEL [Concomitant]
     Route: 048
     Dates: start: 20091115
  9. TAKEPRON [Concomitant]
     Route: 048
     Dates: start: 20091115
  10. DIGOXIN [Concomitant]
     Route: 048
     Dates: start: 20091115

REACTIONS (2)
  - HYPERKALAEMIA [None]
  - RENAL IMPAIRMENT [None]
